FAERS Safety Report 17664235 (Version 3)
Quarter: 2020Q3

REPORT INFORMATION
  Report Type: Spontaneous
  Country: CA (occurrence: CA)
  Receive Date: 20200414
  Receipt Date: 20200707
  Transmission Date: 20201102
  Serious: Yes (Other)
  Sender: FDA-Public Use
  Company Number: CA-GLAXOSMITHKLINE-CA2020AMR061580

PATIENT
  Sex: Female
  Weight: 165 kg

DRUGS (2)
  1. BENLYSTA [Suspect]
     Active Substance: BELIMUMAB
     Indication: SYSTEMIC LUPUS ERYTHEMATOSUS
     Dosage: 720 MG
  2. BENLYSTA [Suspect]
     Active Substance: BELIMUMAB
     Dosage: 700 MG

REACTIONS (4)
  - Arthralgia [Unknown]
  - Insomnia [Unknown]
  - Systemic lupus erythematosus [Unknown]
  - Anxiety [Unknown]
